FAERS Safety Report 25415832 (Version 1)
Quarter: 2025Q2

REPORT INFORMATION
  Report Type: Spontaneous
  Country: CA (occurrence: CA)
  Receive Date: 20250610
  Receipt Date: 20250610
  Transmission Date: 20250716
  Serious: Yes (Life-Threatening, Hospitalization, Other)
  Sender: TEVA
  Company Number: CA-TEVA-VS-3340104

PATIENT
  Age: 13 Year
  Sex: Male

DRUGS (3)
  1. ETOPOSIDE [Suspect]
     Active Substance: ETOPOSIDE
     Indication: Acute myeloid leukaemia
     Route: 042
  2. CYTARABINE [Suspect]
     Active Substance: CYTARABINE
     Indication: Acute myeloid leukaemia
     Route: 042
  3. AMSACRINE [Suspect]
     Active Substance: AMSACRINE
     Indication: Product used for unknown indication
     Route: 042

REACTIONS (2)
  - Febrile neutropenia [Recovered/Resolved]
  - Clostridium test positive [Recovered/Resolved]
